FAERS Safety Report 10540828 (Version 1)
Quarter: 2014Q4

REPORT INFORMATION
  Report Type: Spontaneous
  Country: GB (occurrence: GB)
  Receive Date: 20141024
  Receipt Date: 20141024
  Transmission Date: 20150529
  Serious: Yes (Hospitalization)
  Sender: FDA-Public Use
  Company Number: PHHY2014GB138135

PATIENT
  Age: 79 Year
  Sex: Female

DRUGS (9)
  1. CEFALEXIN [Suspect]
     Active Substance: CEPHALEXIN
     Dosage: 250MG AT NIGHT
     Route: 048
  2. ROTIGOTINE [Suspect]
     Active Substance: ROTIGOTINE
     Dosage: 4 MG, QD
     Route: 062
  3. SINEMET [Suspect]
     Active Substance: CARBIDOPA\LEVODOPA
     Route: 048
  4. RIVASTIGMINE [Suspect]
     Active Substance: RIVASTIGMINE
     Dosage: 3 MG, BID
     Route: 048
  5. SINEMET CR [Suspect]
     Active Substance: CARBIDOPA\LEVODOPA
     Route: 048
  6. AMANTADINE [Suspect]
     Active Substance: AMANTADINE
     Dosage: 100MG ONCE DAILY - INCREASING TO 100MG TWICE DAILY IF NO REACTION
     Route: 048
     Dates: start: 20140924, end: 20141003
  7. QUETIAPINE [Suspect]
     Active Substance: QUETIAPINE
     Route: 048
  8. NOVORAPID [Suspect]
     Active Substance: INSULIN ASPART
     Route: 030
  9. FOLIC ACID. [Suspect]
     Active Substance: FOLIC ACID
     Dosage: 5 MG, QD
     Route: 048

REACTIONS (3)
  - Fall [Recovered/Resolved]
  - Loss of consciousness [Unknown]
  - Confusional state [Recovering/Resolving]

NARRATIVE: CASE EVENT DATE: 20141002
